FAERS Safety Report 15576163 (Version 1)
Quarter: 2018Q4

REPORT INFORMATION
  Report Type: Spontaneous
  Country: DK (occurrence: DK)
  Receive Date: 20181101
  Receipt Date: 20181101
  Transmission Date: 20190205
  Serious: Yes (Other)
  Sender: FDA-Public Use
  Company Number: DK-MYLANLABS-2018M1081880

PATIENT
  Age: 85 Year
  Sex: Female

DRUGS (1)
  1. NAPROXEN MYLAN [Suspect]
     Active Substance: NAPROXEN
     Indication: PROCEDURAL PAIN
     Dosage: 500 MG, QD
     Route: 048
     Dates: start: 20180516, end: 20180524

REACTIONS (4)
  - Cardiac failure [Unknown]
  - Hyperhidrosis [Unknown]
  - Fatigue [Unknown]
  - Dyspnoea [Unknown]

NARRATIVE: CASE EVENT DATE: 20180518
